FAERS Safety Report 17009794 (Version 3)
Quarter: 2019Q4

REPORT INFORMATION
  Report Type: Spontaneous
  Country: US (occurrence: US)
  Receive Date: 20191108
  Receipt Date: 20191223
  Transmission Date: 20200122
  Serious: Yes (Hospitalization, Other)
  Sender: FDA-Public Use
  Company Number: US-PFIZER INC-2019476790

PATIENT
  Age: 10 Year
  Sex: Male

DRUGS (10)
  1. MAGNESIUM [Concomitant]
     Active Substance: MAGNESIUM
     Indication: STATUS ASTHMATICUS
     Dosage: UNK
  2. IPRATROPIUM BROMIDE. [Concomitant]
     Active Substance: IPRATROPIUM BROMIDE
     Indication: STATUS ASTHMATICUS
     Dosage: UNK (NEBULIZATION)
     Route: 055
  3. ALBUTEROL [SALBUTAMOL] [Suspect]
     Active Substance: ALBUTEROL
     Dosage: UNK (RESTARTED ON CONTINUOUS ALBUTEROL)
  4. TERBUTALINE [Suspect]
     Active Substance: TERBUTALINE
     Indication: STATUS ASTHMATICUS
     Dosage: 4 UG/KG, CYCLIC (EVERY ONE MINUTE)
  5. THEOPHYLLINE [Suspect]
     Active Substance: THEOPHYLLINE ANHYDROUS
     Indication: STATUS ASTHMATICUS
     Dosage: 1.6 MG/KG, CYCLIC (EVERY ONE HOUR)(INFUSIONS)
  6. THEOPHYLLINE [Suspect]
     Active Substance: THEOPHYLLINE ANHYDROUS
     Dosage: UNK (RESTARTED ON/THEOPHYLLINE INFUSION)
  7. ISOFLURANE. [Concomitant]
     Active Substance: ISOFLURANE
     Indication: STATUS ASTHMATICUS
     Dosage: UNK
  8. ALBUTEROL [SALBUTAMOL] [Suspect]
     Active Substance: ALBUTEROL
     Indication: STATUS ASTHMATICUS
     Dosage: 20 MG, CYCLIC (EVERY ONE HOUR), CONTINUOUS NEBULIZATION)
     Route: 055
  9. KETAMINE [Concomitant]
     Active Substance: KETAMINE
     Indication: STATUS ASTHMATICUS
     Dosage: UNK
  10. METHYLPREDNISOLONE. [Concomitant]
     Active Substance: METHYLPREDNISOLONE
     Indication: STATUS ASTHMATICUS
     Dosage: UNK
     Route: 042

REACTIONS (1)
  - Unmasking of previously unidentified disease [Unknown]
